FAERS Safety Report 8367740-3 (Version None)
Quarter: 2012Q2

REPORT INFORMATION
  Report Type: 
  Country: None (occurrence: None)
  Receive Date: 20120517
  Receipt Date: 20120515
  Transmission Date: 20120825
  Serious: Yes (Other)
  Sender: FDA-Public Use
  Company Number: DE-GLAXOSMITHKLINE-B0734834A

PATIENT
  Age: 24 Year
  Sex: Female

DRUGS (4)
  1. CEFUROXIME [Suspect]
  2. ZANAMIVIR [Suspect]
     Indication: H1N1 INFLUENZA
     Route: 065
  3. ERYTHROMYCIN [Suspect]
     Route: 065
  4. OSELTAMIVIR [Suspect]
     Indication: H1N1 INFLUENZA

REACTIONS (2)
  - MATERNAL EXPOSURE DURING PREGNANCY [None]
  - ABORTION SPONTANEOUS [None]
